FAERS Safety Report 18011152 (Version 1)
Quarter: 2020Q3

REPORT INFORMATION
  Report Type: Report from Study
  Country: ZA (occurrence: ZA)
  Receive Date: 20200711
  Receipt Date: 20200711
  Transmission Date: 20201103
  Serious: Yes (Death)
  Sender: FDA-Public Use
  Company Number: NVSC2020ZA194482

PATIENT
  Age: 85 Year
  Sex: Male

DRUGS (1)
  1. ONBREZ BREEZHALER [Suspect]
     Active Substance: INDACATEROL
     Indication: CHRONIC OBSTRUCTIVE PULMONARY DISEASE
     Dosage: 150 UG, PRN (AS NEEDED)
     Route: 055

REACTIONS (1)
  - Death [Fatal]

NARRATIVE: CASE EVENT DATE: 202006
